FAERS Safety Report 4964689-0 (Version None)
Quarter: 2006Q2

REPORT INFORMATION
  Report Type: 
  Country: None (occurrence: None)
  Receive Date: 20060406
  Receipt Date: 20050622
  Transmission Date: 20061013
  Serious: Yes (Death, Hospitalization)
  Sender: FDA-Public Use
  Company Number: US-MERCK-0506USA03326

PATIENT
  Age: 67 Year
  Sex: Female
  Weight: 80 kg

DRUGS (5)
  1. VIOXX [Suspect]
     Indication: ARTHRITIS
     Route: 048
     Dates: start: 20010516, end: 20030921
  2. EFFEXOR [Concomitant]
     Route: 065
  3. CELEBREX [Concomitant]
     Route: 065
  4. PROTONIX [Concomitant]
     Route: 065
  5. AMBIEN [Concomitant]
     Route: 065

REACTIONS (37)
  - ACUTE RESPIRATORY DISTRESS SYNDROME [None]
  - ANXIETY [None]
  - ATRIAL FIBRILLATION [None]
  - CARDIAC FAILURE CONGESTIVE [None]
  - CAROTID ARTERY STENOSIS [None]
  - CEREBROVASCULAR ACCIDENT [None]
  - CHRONIC OBSTRUCTIVE PULMONARY DISEASE [None]
  - CONSTIPATION [None]
  - CORONARY ARTERY DISEASE [None]
  - DEPRESSION [None]
  - DIABETES MELLITUS [None]
  - DILATATION ATRIAL [None]
  - DIVERTICULITIS [None]
  - DYSPNOEA EXACERBATED [None]
  - EJECTION FRACTION DECREASED [None]
  - HEAD INJURY [None]
  - HYPOTENSION [None]
  - HYPOXIA [None]
  - INTENTIONAL OVERDOSE [None]
  - ISCHAEMIA [None]
  - ISCHAEMIC CARDIOMYOPATHY [None]
  - LOCALISED INFECTION [None]
  - MYOCARDIAL INFARCTION [None]
  - OBESITY [None]
  - PERIPHERAL VASCULAR DISORDER [None]
  - PNEUMONIA ASPIRATION [None]
  - PSEUDOMONAS INFECTION [None]
  - PULMONARY HYPERTENSION [None]
  - PULMONARY OEDEMA [None]
  - RESPIRATORY DISTRESS [None]
  - RESPIRATORY FAILURE [None]
  - STAPHYLOCOCCAL INFECTION [None]
  - SUPRAVENTRICULAR TACHYCARDIA [None]
  - VENTRICULAR DYSFUNCTION [None]
  - VENTRICULAR FIBRILLATION [None]
  - WEIGHT FLUCTUATION [None]
  - WEIGHT INCREASED [None]
